FAERS Safety Report 4549740-4 (Version None)
Quarter: 2004Q4

REPORT INFORMATION
  Report Type: 
  Country: None (occurrence: None)
  Receive Date: 20041227
  Receipt Date: 20041105
  Transmission Date: 20050328
  Serious: No
  Sender: FDA-Public Use
  Company Number: 04P-163-0279840-00

PATIENT
  Age: 62 Year
  Sex: Female
  Weight: 113.6 kg

DRUGS (8)
  1. HUMIRA [Suspect]
     Indication: RHEUMATOID ARTHRITIS
     Dosage: 40 MG, 1 IN 2 WK, SUBCUTANEOUS
     Route: 058
     Dates: start: 20040101
  2. METHOTREXATE [Concomitant]
  3. ATORVASTATIN [Concomitant]
  4. ZETIA [Concomitant]
  5. VALSARTAN [Concomitant]
  6. GLIBOMET [Concomitant]
  7. ROSIGLITAZONE MALEATE [Concomitant]
  8. ROFECOXIB [Concomitant]

REACTIONS (1)
  - SINUSITIS [None]
